FAERS Safety Report 5855089-X (Version None)
Quarter: 2008Q3

REPORT INFORMATION
  Report Type: 
  Country: None (occurrence: None)
  Receive Date: 20080822
  Receipt Date: 20080707
  Transmission Date: 20090109
  Serious: No
  Sender: FDA-Public Use
  Company Number: US-ABBOTT-08P-163-0461060-00

PATIENT
  Sex: Female
  Weight: 87.168 kg

DRUGS (7)
  1. SYNTHROID [Suspect]
     Indication: HYPOTHYROIDISM
     Route: 058
     Dates: start: 20080201
  2. SYNTHROID [Suspect]
     Route: 048
     Dates: start: 20071001, end: 20080201
  3. SYNTHROID [Suspect]
     Route: 048
     Dates: start: 20010101, end: 20071001
  4. SYNTHROID [Suspect]
     Route: 048
     Dates: start: 20080201
  5. DYAZIDE [Concomitant]
     Indication: HYPERTENSION
     Dosage: 37.5/25MG
     Route: 048
     Dates: start: 20080601
  6. MOMETASONE FUROATE [Concomitant]
     Indication: HYPERSENSITIVITY
     Route: 045
  7. INDIPAMIDE [Concomitant]
     Indication: HYPERTENSION
     Route: 048

REACTIONS (10)
  - AMNESIA [None]
  - ANGIOPATHY [None]
  - BLOOD PRESSURE INCREASED [None]
  - BONE PAIN [None]
  - FATIGUE [None]
  - HYPERTHYROIDISM [None]
  - MOOD SWINGS [None]
  - MUSCULAR WEAKNESS [None]
  - SWELLING [None]
  - THYROID DISORDER [None]
